FAERS Safety Report 11635670 (Version 5)
Quarter: 2016Q4

REPORT INFORMATION
  Report Type: Spontaneous
  Country: US (occurrence: US)
  Receive Date: 20151016
  Receipt Date: 20161215
  Transmission Date: 20170206
  Serious: No
  Sender: FDA-Public Use
  Company Number: US-PFIZER INC-2015341731

PATIENT
  Age: 69 Year
  Sex: Female
  Weight: 61.68 kg

DRUGS (26)
  1. LYRICA [Suspect]
     Active Substance: PREGABALIN
     Indication: NEURALGIA
     Dosage: 100 MG, 3X/DAY
     Route: 048
     Dates: start: 20151207
  2. OXYCODONE [Concomitant]
     Active Substance: OXYCODONE
     Indication: PAIN
     Dosage: UNK
  3. CALCIUM CARBONATE AND VITAMIN D [Concomitant]
     Active Substance: CALCIUM CARBONATE\VITAMIN D
     Dosage: 1 DF, 2X/DAY, (CALCIUM CARBONATE: 600 MG (1500 MG); COLECALCIFEROL: 200 UNIT)
     Route: 048
     Dates: start: 20151207
  4. LOSARTAN. [Concomitant]
     Active Substance: LOSARTAN
     Indication: BLOOD PRESSURE ABNORMAL
     Dosage: 100 MG, DAILY
     Route: 048
     Dates: start: 20160505
  5. ISOMETHEPTENE DICHLORAL APAP [Concomitant]
     Indication: HEADACHE
     Dosage: UNK, [DICHLORALPHENAZONE: 100 MG; ISOMETHEPTENE MUCATE: 65 MG; PARACETAMOL: 325 MG] (1-2 PO FOR HA)
     Route: 048
     Dates: start: 20151207
  6. PERCOCET [Concomitant]
     Active Substance: ACETAMINOPHEN\OXYCODONE HYDROCHLORIDE
     Dosage: UNK, AS NEEDED, [OXYCODONE HYDROCHLORIDE: 10 MG] / [PARACETAMOL: 325 MG] EVERY 6 HOURS
     Route: 048
     Dates: start: 20151207
  7. LIPITOR [Concomitant]
     Active Substance: ATORVASTATIN CALCIUM
     Indication: BLOOD CHOLESTEROL
     Dosage: 80 MG, DAILY
     Route: 048
     Dates: start: 20160505
  8. PROTONIX [Concomitant]
     Active Substance: PANTOPRAZOLE SODIUM
     Dosage: 40 MG, DAILY, EVERY DAY BEFORE BREAKFAST
     Route: 048
     Dates: start: 20160505
  9. BACLOFEN. [Concomitant]
     Active Substance: BACLOFEN
     Dosage: 10 MG, UNK
     Dates: start: 20151207
  10. FERROUS SULFATE. [Concomitant]
     Active Substance: FERROUS SULFATE
     Dosage: 325 MG, 2X/DAY (65 MG IRON)
     Route: 048
     Dates: start: 20160713
  11. VALIUM [Concomitant]
     Active Substance: DIAZEPAM
     Indication: ANXIETY
  12. LYRICA [Suspect]
     Active Substance: PREGABALIN
     Indication: PAIN IN EXTREMITY
     Dosage: 100 MG, 3X/DAY
     Route: 048
  13. NITROGLYCERIN. [Concomitant]
     Active Substance: NITROGLYCERIN
     Dosage: UNK, (400 MCG/SPRAY)
     Route: 060
     Dates: start: 20151207
  14. PERI-COLACE [Concomitant]
     Active Substance: CASANTHRANOL\DOCUSATE SODIUM
     Dosage: UNK, AS NEEDED, (CASANTHRANOL: 8.6 MG; DOCUSATE SODIUM: 50 MG)
     Route: 048
     Dates: start: 20151207
  15. IMDUR [Concomitant]
     Active Substance: ISOSORBIDE MONONITRATE
     Dosage: 60 MG, DAILY (IN THE MORNING)
     Route: 048
     Dates: start: 20160505
  16. BECONASE AQ [Concomitant]
     Active Substance: BECLOMETHASONE DIPROPIONATE MONOHYDRATE
     Dosage: 1 DF, 2X/DAY (IN EACH NOSTRIL)
     Route: 045
     Dates: start: 20160505
  17. ASPIRIN. [Concomitant]
     Active Substance: ASPIRIN
     Dosage: 81 MG, DAILY
     Route: 048
     Dates: start: 20160928
  18. LYRICA [Suspect]
     Active Substance: PREGABALIN
     Indication: BACK PAIN
     Dosage: 100 MG, 1X/DAY
     Route: 048
  19. ALLEGRA [Concomitant]
     Active Substance: FEXOFENADINE HYDROCHLORIDE
     Dosage: 180 MG, 2X/DAY
     Route: 048
     Dates: start: 20151207
  20. SUPER B-50 COMPLEX [Concomitant]
     Dosage: UNK
     Dates: start: 20151207
  21. VITAMIN E [Concomitant]
     Active Substance: .ALPHA.-TOCOPHEROL
     Dosage: 1000 IU, DAILY
     Route: 048
     Dates: start: 20151207
  22. VALIUM [Concomitant]
     Active Substance: DIAZEPAM
     Indication: MUSCLE SPASMS
     Dosage: UNK UNK, AS NEEDED(TAKE 1/2 TO 1 TABLET PO Q 6 HOURS)
     Route: 048
     Dates: start: 20160802
  23. EFFEXOR XR [Concomitant]
     Active Substance: VENLAFAXINE HYDROCHLORIDE
     Dosage: 150 MG, DAILY
     Route: 048
     Dates: start: 20161201
  24. DIAZEPAM. [Concomitant]
     Active Substance: DIAZEPAM
     Dosage: UNK
  25. ATENOLOL. [Concomitant]
     Active Substance: ATENOLOL
     Dosage: 100 MG, DAILY
     Route: 048
     Dates: start: 20160505
  26. PLAVIX [Concomitant]
     Active Substance: CLOPIDOGREL BISULFATE
     Dosage: 75 MG, DAILY
     Route: 048
     Dates: start: 20160505

REACTIONS (3)
  - Hypothyroidism [Unknown]
  - Anaemia [Unknown]
  - Drug ineffective [Unknown]

NARRATIVE: CASE EVENT DATE: 201506
